FAERS Safety Report 19035516 (Version 1)
Quarter: 2021Q1

REPORT INFORMATION
  Report Type: Spontaneous
  Country: DE (occurrence: DE)
  Receive Date: 20210320
  Receipt Date: 20210320
  Transmission Date: 20210420
  Serious: Yes (Hospitalization)
  Sender: FDA-Public Use
  Company Number: NVSC2021DE058549

PATIENT
  Age: 86 Year
  Sex: Female

DRUGS (17)
  1. PALEXIA [Suspect]
     Active Substance: TAPENTADOL HYDROCHLORIDE
     Dosage: 50 MG, QD
     Route: 065
  2. PROBIOTIC [Suspect]
     Active Substance: PROBIOTICS NOS
     Indication: GASTROINTESTINAL DISORDER PROPHYLAXIS
     Dosage: UNK, 12 BACTERIAL STRAINS
     Route: 065
  3. VITAMIN D [Concomitant]
     Active Substance: VITAMIN D NOS
     Dosage: UNK, QD
     Route: 065
  4. BUDESONIDE. [Suspect]
     Active Substance: BUDESONIDE
     Indication: PRODUCT USED FOR UNKNOWN INDICATION
     Dosage: 3 MG, QD
     Route: 048
  5. NALOXONE [Concomitant]
     Active Substance: NALOXONE
     Indication: PAIN
     Dosage: UNK
     Route: 065
     Dates: start: 20210212
  6. MAGNESIUM OROTATE. [Concomitant]
     Active Substance: MAGNESIUM OROTATE
     Indication: PRODUCT USED FOR UNKNOWN INDICATION
     Dosage: 2 DF, Q12H
     Route: 065
  7. PALEXIA [Suspect]
     Active Substance: TAPENTADOL HYDROCHLORIDE
     Indication: PAIN
     Dosage: 50 MG, QD (WAS PHASED OUT IN MID?DEC?2020 UNTIL JAN?2021)
     Route: 065
  8. SPIRONOLACTON [Suspect]
     Active Substance: SPIRONOLACTONE
     Indication: PRODUCT USED FOR UNKNOWN INDICATION
     Dosage: 25 MG, QD
     Route: 065
  9. VITAMIN D [Concomitant]
     Active Substance: VITAMIN D NOS
     Dosage: 1000 IU, QD
     Route: 065
     Dates: start: 202101
  10. PALEXIA [Suspect]
     Active Substance: TAPENTADOL HYDROCHLORIDE
     Dosage: 50 MG, QD
     Route: 065
  11. ATACAND [Suspect]
     Active Substance: CANDESARTAN CILEXETIL
     Indication: HYPERTENSION
     Dosage: 8 MG, QD
     Route: 048
  12. METAMIZOL [Concomitant]
     Active Substance: METAMIZOLE SODIUM
     Indication: PAIN
     Dosage: 60 DRP, TID (20?20?20)
     Route: 048
     Dates: start: 202101
  13. VITAMIN D [Concomitant]
     Active Substance: VITAMIN D NOS
     Indication: PRODUCT USED FOR UNKNOWN INDICATION
     Dosage: UNK, QD
     Route: 065
     Dates: start: 202101
  14. LEVOTHYROXINE SODIUM. [Suspect]
     Active Substance: LEVOTHYROXINE SODIUM
     Indication: PRODUCT USED FOR UNKNOWN INDICATION
     Dosage: 75 UG, QD
     Route: 065
  15. PALEXIA [Suspect]
     Active Substance: TAPENTADOL HYDROCHLORIDE
     Dosage: WAS PHASED OUT IN MID?DEC?2020 UNTIL JAN?2021
     Route: 065
  16. LIXIANA [Suspect]
     Active Substance: EDOXABAN TOSYLATE
     Indication: PRODUCT USED FOR UNKNOWN INDICATION
     Dosage: UNK
     Route: 065
  17. VITAMIN D [Concomitant]
     Active Substance: VITAMIN D NOS
     Dosage: 2000 IU, QD
     Route: 065

REACTIONS (3)
  - Diarrhoea [Recovering/Resolving]
  - Faeces discoloured [Unknown]
  - Gastrointestinal pain [Unknown]

NARRATIVE: CASE EVENT DATE: 202101
